FAERS Safety Report 7130363-8 (Version None)
Quarter: 2010Q4

REPORT INFORMATION
  Report Type: 
  Country: None (occurrence: None)
  Receive Date: 20101201
  Receipt Date: 20101120
  Transmission Date: 20110411
  Serious: Yes (Other)
  Sender: FDA-Public Use
  Company Number: CA-JNJFOC-20101108542

PATIENT
  Sex: Female

DRUGS (7)
  1. REMICADE [Suspect]
     Indication: BEHCET'S SYNDROME
     Route: 042
  2. REMICADE [Suspect]
     Indication: CROHN'S DISEASE
     Route: 042
  3. SOLU-CORTEF [Suspect]
     Indication: PREMEDICATION
     Route: 065
  4. STATEX [Concomitant]
     Route: 065
  5. XANAX [Concomitant]
     Route: 065
  6. IMOVANE [Concomitant]
     Route: 065
  7. ATIVAN [Concomitant]
     Route: 065

REACTIONS (1)
  - INSOMNIA [None]
